FAERS Safety Report 21837972 (Version 1)
Quarter: 2023Q1

REPORT INFORMATION
  Report Type: Spontaneous
  Country: GB (occurrence: GB)
  Receive Date: 20230109
  Receipt Date: 20230109
  Transmission Date: 20230417
  Serious: Yes (Other)
  Sender: FDA-Public Use
  Company Number: None

PATIENT
  Age: 88 Year
  Sex: Female
  Weight: 64 kg

DRUGS (25)
  1. DOXYCYCLINE [Suspect]
     Active Substance: DOXYCYCLINE
     Indication: Cough
     Dosage: 100 MILLIGRAM (ACUTE COUGH/BRONCHITIS - CONSIDER DELAYED SCRIP)
     Route: 065
     Dates: start: 20221207
  2. DOXYCYCLINE [Suspect]
     Active Substance: DOXYCYCLINE
     Indication: Bronchitis
  3. ALENDRONIC ACID [Concomitant]
     Active Substance: ALENDRONIC ACID
     Dosage: 1 DOSAGE FORM, QD
     Route: 065
     Dates: start: 20211027
  4. ALLOPURINOL [Concomitant]
     Active Substance: ALLOPURINOL
     Dosage: 2 DOSAGE FORM, QD
     Route: 065
     Dates: start: 20210913, end: 20221020
  5. AMOXICILLIN [Concomitant]
     Active Substance: AMOXICILLIN
     Indication: Cough
     Dosage: ACUTE COUGH/BRONCHITIS -CONSIDER DELAYED SCRIP
     Route: 065
     Dates: start: 20221013, end: 20221018
  6. AMOXICILLIN [Concomitant]
     Active Substance: AMOXICILLIN
     Indication: Bronchitis
  7. ASPIRIN [Concomitant]
     Active Substance: ASPIRIN
     Dosage: 1 DOSAGE FORM, QD
     Route: 065
     Dates: start: 20210913
  8. BUMETANIDE [Concomitant]
     Active Substance: BUMETANIDE
     Dosage: 1 DOSAGE FORM, AM (IN THE MORNING)
     Route: 065
     Dates: start: 20210913
  9. CALCIUM\CHOLECALCIFEROL [Concomitant]
     Active Substance: CALCIUM\CHOLECALCIFEROL
     Dosage: 1 DOSAGE FORM, BID
     Route: 065
     Dates: start: 20211027
  10. CANDESARTAN [Concomitant]
     Active Substance: CANDESARTAN
     Dosage: 1 DOSAGE FORM, QD
     Route: 065
     Dates: start: 20210913
  11. CLARITHROMYCIN [Concomitant]
     Active Substance: CLARITHROMYCIN
     Dosage: 1 DOSAGE FORM, BID
     Route: 065
     Dates: start: 20221110, end: 20221117
  12. CODEINE PHOSPHATE [Concomitant]
     Active Substance: CODEINE PHOSPHATE
     Dosage: 1 DOSAGE FORM, QID
     Route: 065
     Dates: start: 20221214, end: 20221221
  13. DOMPERIDONE [Concomitant]
     Active Substance: DOMPERIDONE
     Dosage: 1 DOSAGE FORM, TID
     Route: 065
     Dates: start: 20221010, end: 20221011
  14. ERYTHROMYCIN [Concomitant]
     Active Substance: ERYTHROMYCIN
     Indication: Oropharyngeal pain
     Dosage: SORE THROAT/TONSILITIS (PREGNANT AND PENCILLIN
     Route: 065
     Dates: start: 20221221, end: 20221226
  15. ERYTHROMYCIN [Concomitant]
     Active Substance: ERYTHROMYCIN
     Indication: Tonsillitis
  16. FERROUS FUMARATE [Concomitant]
     Active Substance: FERROUS FUMARATE
     Dosage: 1 DOSAGE FORM, QD
     Route: 065
     Dates: start: 20221107, end: 20221205
  17. FERROUS SULFATE [Concomitant]
     Active Substance: FERROUS SULFATE
     Dosage: 1 DOSAGE FORM, BID
     Route: 065
     Dates: start: 20221104, end: 20221107
  18. FOLIC ACID [Concomitant]
     Active Substance: FOLIC ACID
     Dosage: 1 DOSAGE FORM, QD
     Route: 065
     Dates: start: 20210913
  19. HYDROCORTISONE [Concomitant]
     Active Substance: HYDROCORTISONE
     Dosage: 1 DOSAGE FORM, BID (FOR 3 WEEKS )
     Route: 065
     Dates: start: 20221122, end: 20221124
  20. LANSOPRAZOLE [Concomitant]
     Active Substance: LANSOPRAZOLE
     Dosage: 1 DOSAGE FORM, QD
     Route: 065
     Dates: start: 20210913, end: 20221020
  21. LETROZOLE [Concomitant]
     Active Substance: LETROZOLE
     Dosage: 1 DOSAGE FORM, QD
     Route: 065
     Dates: start: 20210824
  22. LEVOTHYROXINE [Concomitant]
     Active Substance: LEVOTHYROXINE
     Dosage: 1 DF, AM (IN THE MORNING ON EMPTY STOMACH)
     Route: 065
     Dates: start: 20211122
  23. LOPERAMIDE [Concomitant]
     Active Substance: LOPERAMIDE
     Dosage: USE AS DIRECTED
     Route: 065
     Dates: start: 20210913
  24. PRAVASTATIN [Concomitant]
     Active Substance: PRAVASTATIN
     Dosage: 1 DOSAGE FORM, HS (AT NIGHT)
     Route: 065
     Dates: start: 20210913
  25. ALBUTEROL [Concomitant]
     Active Substance: ALBUTEROL
     Dosage: 2 DOSAGE FORM, QID (AS NECESSARY)
     Route: 065
     Dates: start: 20210913

REACTIONS (1)
  - Back pain [Unknown]

NARRATIVE: CASE EVENT DATE: 20221228
